FAERS Safety Report 11184649 (Version 1)
Quarter: 2015Q2

REPORT INFORMATION
  Report Type: Spontaneous
  Country: US (occurrence: US)
  Receive Date: 20150612
  Receipt Date: 20150612
  Transmission Date: 20150821
  Serious: Yes (Other)
  Sender: FDA-Public Use
  Company Number: US-BAYER-2015-307419

PATIENT
  Sex: Female

DRUGS (1)
  1. AVELOX [Suspect]
     Active Substance: MOXIFLOXACIN HYDROCHLORIDE
     Dosage: UNK
     Dates: start: 2005, end: 2013

REACTIONS (6)
  - Injury [None]
  - Neuralgia [None]
  - Emotional distress [None]
  - Pain [None]
  - Anhedonia [None]
  - Neuropathy peripheral [None]
